FAERS Safety Report 4486607-4 (Version None)
Quarter: 2004Q4

REPORT INFORMATION
  Report Type: 
  Country: None (occurrence: None)
  Receive Date: 20041027
  Receipt Date: 20041015
  Transmission Date: 20050328
  Serious: Yes (Other)
  Sender: FDA-Public Use
  Company Number: IT-BRISTOL-MYERS SQUIBB COMPANY-12733556

PATIENT
  Age: 12 Year
  Sex: Male

DRUGS (3)
  1. STAVUDINE [Suspect]
  2. DIDANOSINE [Suspect]
  3. LOPINAVIR + RITONAVIR [Suspect]

REACTIONS (1)
  - GYNAECOMASTIA [None]
